FAERS Safety Report 9200389 (Version 2)
Quarter: 2016Q2

REPORT INFORMATION
  Report Type: Report from Study
  Country: US (occurrence: US)
  Receive Date: 20130329
  Receipt Date: 20160506
  Transmission Date: 20160815
  Serious: Yes (Hospitalization, Other)
  Sender: FDA-Public Use
  Company Number: US-AMGEN-USASP2013021046

PATIENT
  Age: 57 Year
  Sex: Female

DRUGS (3)
  1. ENBREL [Suspect]
     Active Substance: ETANERCEPT
     Dosage: UNK
     Route: 065
  2. ENBREL [Suspect]
     Active Substance: ETANERCEPT
     Dosage: UNK
     Route: 065
     Dates: start: 2006
  3. ENBREL [Suspect]
     Active Substance: ETANERCEPT
     Indication: RHEUMATOID ARTHRITIS
     Dosage: 50 MG, QMO
     Route: 065
     Dates: start: 19990101

REACTIONS (14)
  - Herpes zoster [Unknown]
  - Injection site pain [Not Recovered/Not Resolved]
  - Chronic obstructive pulmonary disease [Unknown]
  - Gingival abscess [Recovered/Resolved]
  - Infection [Recovered/Resolved]
  - Injection site reaction [Recovered/Resolved]
  - Impaired healing [Recovered/Resolved]
  - Rheumatoid nodule [Recovered/Resolved]
  - Nephrolithiasis [Unknown]
  - Malaise [Unknown]
  - Foot deformity [Recovered/Resolved]
  - Condition aggravated [Recovered/Resolved]
  - Pain in extremity [Not Recovered/Not Resolved]
  - Local swelling [Recovered/Resolved]

NARRATIVE: CASE EVENT DATE: 2002
